FAERS Safety Report 7593668-2 (Version None)
Quarter: 2011Q3

REPORT INFORMATION
  Report Type: 
  Country: None (occurrence: None)
  Receive Date: 20110706
  Receipt Date: 20110701
  Transmission Date: 20111222
  Serious: Yes (Life-Threatening, Hospitalization, Other)
  Sender: FDA-Public Use
  Company Number: PHHY2011FR58575

PATIENT
  Sex: Female

DRUGS (6)
  1. LEVOTHYROXINE SODIUM [Concomitant]
     Indication: HYPOTHYROIDISM
     Dosage: 25 UG, QD
  2. FEMARA [Suspect]
     Indication: BREAST CANCER
     Dosage: 2.5 MG, QD
     Route: 048
     Dates: start: 20080101, end: 20110506
  3. ALDACTONE [Concomitant]
     Indication: HYPERTENSION
     Dosage: 25 MG, UNK
  4. FENOFIBRATE [Concomitant]
     Indication: DYSLIPIDAEMIA
     Dosage: 200 MG, QD
  5. MONOCRIXO [Concomitant]
     Indication: PAIN
     Dosage: 100 MG, QD
  6. BISOPROLOL FUMARATE [Concomitant]
     Indication: HYPERTENSION
     Dosage: 5 MG, QD

REACTIONS (7)
  - VISUAL IMPAIRMENT [None]
  - BLOOD PRESSURE SYSTOLIC INCREASED [None]
  - CEREBROVASCULAR ACCIDENT [None]
  - BLOOD GLUCOSE ABNORMAL [None]
  - VIITH NERVE PARALYSIS [None]
  - APHASIA [None]
  - ATRIAL FIBRILLATION [None]
